FAERS Safety Report 8217803-8 (Version None)
Quarter: 2012Q1

REPORT INFORMATION
  Report Type: 
  Country: None (occurrence: None)
  Receive Date: 20120319
  Receipt Date: 20120307
  Transmission Date: 20120608
  Serious: Yes (Other)
  Sender: FDA-Public Use
  Company Number: US-JNJFOC-20120304262

PATIENT
  Sex: Female
  Weight: 88.45 kg

DRUGS (4)
  1. FORTEO [Concomitant]
     Indication: OSTEOPOROSIS
     Route: 065
  2. REMICADE [Suspect]
     Indication: RHEUMATOID ARTHRITIS
     Route: 042
     Dates: start: 20120224
  3. ACIPHEX [Suspect]
     Indication: GASTRIC DISORDER
     Route: 048
  4. REMICADE [Suspect]
     Route: 042

REACTIONS (6)
  - WEIGHT INCREASED [None]
  - BLINDNESS UNILATERAL [None]
  - MACULAR OEDEMA [None]
  - GASTRIC DISORDER [None]
  - BACK PAIN [None]
  - HEADACHE [None]
